FAERS Safety Report 24995606 (Version 1)
Quarter: 2025Q1

REPORT INFORMATION
  Report Type: Spontaneous
  Country: ES (occurrence: ES)
  Receive Date: 20250221
  Receipt Date: 20250221
  Transmission Date: 20250409
  Serious: Yes (Death, Hospitalization)
  Sender: FRESENIUS KABI
  Company Number: None

PATIENT
  Age: 74 Year
  Sex: Female

DRUGS (6)
  1. PIPERACILLIN AND TAZOBACTAM [Suspect]
     Active Substance: PIPERACILLIN SODIUM\TAZOBACTAM SODIUM
     Indication: Septic shock
     Route: 042
     Dates: end: 20241111
  2. TRAZODONE HYDROCHLORIDE (3160CH) [Concomitant]
     Indication: Product used for unknown indication
     Route: 048
     Dates: start: 202301, end: 20241111
  3. SIMVASTATIN [Concomitant]
     Active Substance: SIMVASTATIN
     Indication: Dyslipidaemia
     Route: 048
     Dates: start: 201506, end: 20241104
  4. CLOPIDOGREL [Concomitant]
     Active Substance: CLOPIDOGREL BISULFATE
     Indication: Cerebrovascular accident
     Route: 048
     Dates: start: 202006, end: 20241104
  5. ENALAPRIL MALEATE (2142MA) [Concomitant]
     Indication: Hypertension
     Route: 048
     Dates: start: 202007, end: 20241104
  6. NOCTAMID 1 mg TABLETS [Concomitant]
     Indication: Product used for unknown indication
     Route: 048
     Dates: start: 202007, end: 20241104

REACTIONS (1)
  - Hepatitis cholestatic [Fatal]

NARRATIVE: CASE EVENT DATE: 20241101
